FAERS Safety Report 9413039 (Version 1)
Quarter: 2013Q3

REPORT INFORMATION
  Report Type: Spontaneous
  Country: DK (occurrence: DK)
  Receive Date: 20130705
  Receipt Date: 20130705
  Transmission Date: 20140515
  Serious: Yes (Hospitalization, Other)
  Sender: FDA-Public Use
  Company Number: DSA_61044_2012

PATIENT
  Age: 80 Year
  Sex: Male

DRUGS (11)
  1. METRONIDAZOLE [Suspect]
     Indication: PSEUDOMEMBRANOUS COLITIS
  2. METRONIDAZOLE [Suspect]
     Indication: CLOSTRIDIUM DIFFICILE INFECTION
  3. CEFALEXIN [Suspect]
     Indication: JOINT INJURY
     Route: 048
  4. CEFUROXIME [Suspect]
     Indication: JOINT INJURY
     Route: 042
  5. BICALUTAMIDE (BICALUTAMIDE)(BICALUTAMIDE) [Concomitant]
  6. VESICARE [SOLIFENACIN SUCCINATE] [Suspect]
  7. TAMSULOSIN (TAMSULOSIN HYDROCHLORIDE)(TAMSULOSIN HYDROCHLORIDE) [Concomitant]
  8. SIMVASTATIN (SIMVASTATIN)(SIMVASTATIN) [Concomitant]
  9. LOSARTAN (LOSARTAN POTASSIUM)(LOSARTAN POTASSIUM) [Concomitant]
  10. CLOPIDOGREL (CLOPIDOGREL)(CLOPIDOGREL) [Concomitant]
  11. DICLOXACILLIN (DICLOXACILLIN)(DICLOXACILLIN) [Concomitant]

REACTIONS (6)
  - Clostridium difficile sepsis [None]
  - Hypotension [None]
  - Renal failure [None]
  - No therapeutic response [None]
  - Pseudomembranous colitis [None]
  - Clostridium difficile colitis [None]
